FAERS Safety Report 7894437-6 (Version None)
Quarter: 2011Q4

REPORT INFORMATION
  Report Type: 
  Country: None (occurrence: None)
  Receive Date: 20111105
  Receipt Date: 20111026
  Transmission Date: 20120403
  Serious: Yes (Hospitalization)
  Sender: FDA-Public Use
  Company Number: SE-ASTRAZENECA-2011SE58576

PATIENT
  Age: 82 Year
  Sex: Male

DRUGS (7)
  1. METOPROLOL SUCCINATE [Suspect]
     Route: 048
  2. ISOSORBIDMONONITRAT ACCORD [Concomitant]
  3. ARICEPT [Suspect]
     Route: 048
     Dates: start: 20100609, end: 20100701
  4. ARICEPT [Suspect]
     Route: 048
     Dates: start: 20110707
  5. ASPIRIN [Concomitant]
  6. FELODIPINE [Concomitant]
  7. XALATAN [Concomitant]

REACTIONS (3)
  - SYNCOPE [None]
  - BRADYCARDIA [None]
  - SICK SINUS SYNDROME [None]
